FAERS Safety Report 6206857-6 (Version None)
Quarter: 2009Q2

REPORT INFORMATION
  Report Type: 
  Country: None (occurrence: None)
  Receive Date: 20090528
  Receipt Date: 20090206
  Transmission Date: 20091009
  Serious: No
  Sender: FDA-Public Use
  Company Number: US-AMGEN-US332471

PATIENT
  Sex: Female
  Weight: 62 kg

DRUGS (6)
  1. NPLATE [Suspect]
     Indication: IDIOPATHIC THROMBOCYTOPENIC PURPURA
     Route: 058
     Dates: start: 20090109
  2. ORTHO-NOVUM [Concomitant]
     Route: 065
     Dates: end: 20090220
  3. ATIVAN [Concomitant]
     Route: 065
     Dates: end: 20090130
  4. AMBIEN [Concomitant]
     Route: 065
     Dates: start: 20080716
  5. AMLODIPINE/VALSARTAN [Concomitant]
     Route: 065
     Dates: start: 20090210
  6. DECADRON [Concomitant]
     Route: 065
     Dates: end: 20090109

REACTIONS (1)
  - HYPERTENSION [None]
